FAERS Safety Report 12699624 (Version 1)
Quarter: 2016Q3

REPORT INFORMATION
  Report Type: Spontaneous
  Country: US (occurrence: US)
  Receive Date: 20160830
  Receipt Date: 20160830
  Transmission Date: 20161109
  Serious: Yes (Other)
  Sender: FDA-Public Use
  Company Number: US-JNJFOC-20160823858

PATIENT
  Sex: Female

DRUGS (3)
  1. PACLITAXEL. [Suspect]
     Active Substance: PACLITAXEL
     Indication: NEOPLASM MALIGNANT
     Route: 065
  2. DOXORUBICIN HYDROCHLORIDE. [Suspect]
     Active Substance: DOXORUBICIN HYDROCHLORIDE
     Indication: NEOPLASM MALIGNANT
     Route: 065
  3. CISPLATIN. [Suspect]
     Active Substance: CISPLATIN
     Indication: NEOPLASM MALIGNANT
     Route: 065

REACTIONS (9)
  - Jejunal ulcer [Unknown]
  - Neuropathy peripheral [Unknown]
  - Urosepsis [Unknown]
  - Small intestinal obstruction [Unknown]
  - Lymphoedema [Unknown]
  - Fistula [Unknown]
  - Pelvic infection [Unknown]
  - Renal failure [Unknown]
  - Wound dehiscence [Unknown]
